FAERS Safety Report 17900250 (Version 2)
Quarter: 2020Q3

REPORT INFORMATION
  Report Type: Spontaneous
  Country: US (occurrence: US)
  Receive Date: 20200616
  Receipt Date: 20200904
  Transmission Date: 20201103
  Serious: No
  Sender: FDA-Public Use
  Company Number: US-PFIZER INC-2020231627

PATIENT
  Age: 69 Year
  Sex: Male

DRUGS (1)
  1. XELJANZ [Suspect]
     Active Substance: TOFACITINIB CITRATE
     Indication: COLITIS ULCERATIVE
     Dosage: 10 MG, 2X/DAY [10 MG TABS PO (ORAL) BID (TWICE A DAY) ]
     Route: 048
     Dates: start: 20200514

REACTIONS (5)
  - Blood iron decreased [Unknown]
  - Skin papilloma [Unknown]
  - Acne [Unknown]
  - Constipation [Unknown]
  - Rash macular [Unknown]
